FAERS Safety Report 8874457 (Version 1)
Quarter: 2012Q4

REPORT INFORMATION
  Report Type: 
  Country: US (occurrence: US)
  Receive Date: 20121030
  Receipt Date: 20121030
  Transmission Date: 20130627
  Serious: No
  Sender: FDA-Public Use
  Company Number: US-PFIZER INC-2012267630

PATIENT
  Age: 54 Year
  Sex: Female
  Weight: 56.24 kg

DRUGS (4)
  1. CHANTIX [Suspect]
     Indication: SMOKING CESSATION THERAPY
     Dosage: 0.5 mg, 1x/day
     Route: 048
     Dates: start: 20121004, end: 201210
  2. CHANTIX [Suspect]
     Dosage: 1 mg, 2x/day
     Route: 048
     Dates: start: 201210, end: 201210
  3. CHANTIX [Suspect]
     Dosage: Unknown dose, split tablet into unequal parts
     Route: 048
     Dates: start: 201210, end: 20121022
  4. CHANTIX [Suspect]
     Dosage: 1 mg, 1x/day
     Route: 048
     Dates: start: 20121023

REACTIONS (5)
  - Nausea [Unknown]
  - Urinary incontinence [Unknown]
  - Tooth disorder [Unknown]
  - Pre-existing condition improved [Unknown]
  - Therapeutic response unexpected [Unknown]
